FAERS Safety Report 9983276 (Version 1)
Quarter: 2014Q1

REPORT INFORMATION
  Report Type: Report from Study
  Country: DE (occurrence: DE)
  Receive Date: 20140307
  Receipt Date: 20140307
  Transmission Date: 20141002
  Serious: Yes (Hospitalization)
  Sender: FDA-Public Use
  Company Number: DE-ABBVIE-14P-062-1207988-00

PATIENT
  Sex: Male
  Weight: 65 kg

DRUGS (6)
  1. HUMIRA [Suspect]
     Indication: CROHN^S DISEASE
     Route: 058
     Dates: start: 200911
  2. CALCIMAGON D3 [Concomitant]
     Indication: PRODUCT USED FOR UNKNOWN INDICATION
  3. FERROSANOL [Concomitant]
     Indication: PRODUCT USED FOR UNKNOWN INDICATION
  4. OBSIDAN [Concomitant]
     Indication: PRODUCT USED FOR UNKNOWN INDICATION
  5. PANTOZOL [Concomitant]
     Indication: PRODUCT USED FOR UNKNOWN INDICATION
  6. DEKRISTOL [Concomitant]
     Indication: PRODUCT USED FOR UNKNOWN INDICATION

REACTIONS (4)
  - Varices oesophageal [Recovered/Resolved]
  - Abdominal pain [Recovered/Resolved]
  - Vomiting [Recovering/Resolving]
  - Small intestinal stenosis [Unknown]
